FAERS Safety Report 16771136 (Version 2)
Quarter: 2019Q4

REPORT INFORMATION
  Report Type: Report from Study
  Country: None (occurrence: GT)
  Receive Date: 20190904
  Receipt Date: 20191129
  Transmission Date: 20200122
  Serious: Yes (Other)
  Sender: FDA-Public Use
  Company Number: GT-ABBVIE-19K-069-2910370-00

PATIENT
  Sex: Male
  Weight: 57.66 kg

DRUGS (1)
  1. ZEMPLAR [Suspect]
     Active Substance: PARICALCITOL
     Indication: HYPERPARATHYROIDISM SECONDARY
     Route: 042
     Dates: start: 20170208

REACTIONS (4)
  - Blood parathyroid hormone increased [Not Recovered/Not Resolved]
  - Blood parathyroid hormone increased [Recovered/Resolved]
  - Hip fracture [Recovering/Resolving]
  - Arthralgia [Unknown]

NARRATIVE: CASE EVENT DATE: 2017
